FAERS Safety Report 8340374-2 (Version None)
Quarter: 2012Q2

REPORT INFORMATION
  Report Type: 
  Country: None (occurrence: None)
  Receive Date: 20120507
  Receipt Date: 20120501
  Transmission Date: 20120825
  Serious: Yes (Other)
  Sender: FDA-Public Use
  Company Number: US-PFIZER INC-2012107121

PATIENT
  Sex: Male

DRUGS (2)
  1. LYRICA [Suspect]
     Dosage: UNK
  2. HYDROCODONE [Concomitant]
     Dosage: UNK

REACTIONS (4)
  - OEDEMA PERIPHERAL [None]
  - BEDRIDDEN [None]
  - MYALGIA [None]
  - MALAISE [None]
